FAERS Safety Report 5390523-3 (Version None)
Quarter: 2007Q3

REPORT INFORMATION
  Report Type: 
  Country: None (occurrence: None)
  Receive Date: 20070718
  Receipt Date: 20070214
  Transmission Date: 20080115
  Serious: No
  Sender: FDA-Public Use
  Company Number: US-KINGPHARMUSA00001-K200700184

PATIENT
  Sex: Female
  Weight: 57.143 kg

DRUGS (11)
  1. LEVOXYL [Suspect]
     Indication: BASEDOW'S DISEASE
     Dosage: UNK, QD
     Route: 048
     Dates: start: 19980101, end: 20060301
  2. LEVOXYL [Suspect]
     Dosage: 125 MCG, QD
     Route: 048
     Dates: start: 20060301, end: 20060301
  3. LEVOXYL [Suspect]
     Dosage: 125 MCG 6D/W, 137 MCG 1D/W
     Route: 048
     Dates: start: 20060301
  4. LEVOXYL [Suspect]
     Dosage: 125 MCG 5D/W, 137 MCG 2D/W
     Route: 048
  5. LEVOXYL [Suspect]
     Dosage: 125 MCG 4D/W, 137 MCG 3D/W
     Route: 048
  6. LEVOXYL [Suspect]
     Dosage: 125 MCG 3D/W, 137 MCG 4D/W
     Route: 048
  7. LEVOXYL [Suspect]
     Dosage: 125 MCG 2D/W, 137 MCG 5D/W
     Route: 048
     Dates: start: 20061201, end: 20070208
  8. LEVOXYL [Suspect]
     Dosage: 137 MCG, QD
     Route: 048
     Dates: start: 20070209
  9. RALOXIFENE HCL [Concomitant]
     Indication: OSTEOPOROSIS
     Dates: start: 19990101
  10. CENTRUM /00554501/ [Concomitant]
  11. CALCIUM CHLORIDE [Concomitant]
     Dosage: UNK, UNK

REACTIONS (9)
  - ARRHYTHMIA [None]
  - BLOOD THYROID STIMULATING HORMONE INCREASED [None]
  - CONSTIPATION [None]
  - EXERCISE TOLERANCE DECREASED [None]
  - FEELING COLD [None]
  - HYPOTHYROIDISM [None]
  - SOMNOLENCE [None]
  - SWELLING FACE [None]
  - WEIGHT INCREASED [None]
